FAERS Safety Report 6999017-2 (Version None)
Quarter: 2010Q3

REPORT INFORMATION
  Report Type: 
  Country: None (occurrence: None)
  Receive Date: 20100920
  Receipt Date: 20100914
  Transmission Date: 20110219
  Serious: Yes (Death, Life-Threatening, Hospitalization, Disabling, Other)
  Sender: FDA-Public Use
  Company Number: US-BAYER-201011109NA

PATIENT
  Age: 71 Year
  Sex: Male

DRUGS (15)
  1. NEXAVAR [Suspect]
     Indication: HEPATIC NEOPLASM MALIGNANT
     Dosage: TOTAL DAILY DOSE: 200 MG  UNIT DOSE: 200 MG
     Route: 048
     Dates: start: 20091102, end: 20091108
  2. NEXAVAR [Suspect]
     Dosage: TOTAL DAILY DOSE: 400 MG  UNIT DOSE: 200 MG
     Route: 048
     Dates: start: 20091109, end: 20100115
  3. PROCRIT [Concomitant]
     Indication: ANAEMIA
     Dosage: 40,000 WEEKLY
     Route: 058
     Dates: start: 20080123
  4. RIFAXIMIN [Concomitant]
     Indication: HEPATIC ENCEPHALOPATHY
     Route: 048
     Dates: start: 20090922
  5. LACTULOSE [Concomitant]
     Indication: HEPATIC ENCEPHALOPATHY
     Dosage: TOTAL DAILY DOSE: 10 G
     Route: 048
     Dates: start: 20070606
  6. LACTULOSE [Concomitant]
     Dosage: DOSE INCREASED
     Dates: start: 20100101
  7. PREVACID [Concomitant]
     Indication: GASTRIC ULCER
     Dosage: TOTAL DAILY DOSE: 30 MG
     Route: 048
     Dates: start: 20070606
  8. INDERAL LA [Concomitant]
     Indication: HYPERTENSION
     Dosage: TOTAL DAILY DOSE: 120 MG
     Route: 048
     Dates: start: 20070227
  9. TORSEMIDE [Concomitant]
     Indication: OEDEMA
     Dosage: TOTAL DAILY DOSE: 40 MG
     Route: 048
     Dates: start: 20080123, end: 20100115
  10. SPIRONOLACTONE [Concomitant]
     Indication: OEDEMA
     Dosage: TOTAL DAILY DOSE: 100 MG
     Route: 048
     Dates: start: 20080123, end: 20100115
  11. ALLOPURINOL [Concomitant]
     Dosage: TOTAL DAILY DOSE: 100 MG
     Route: 048
     Dates: start: 20070201, end: 20100115
  12. ALLOPURINOL [Concomitant]
     Route: 048
     Dates: start: 20091208
  13. FOLIC ACID [Concomitant]
     Indication: ANAEMIA
     Dosage: TOTAL DAILY DOSE: 2 MG
     Route: 048
     Dates: start: 20070129
  14. MULTI-VITAMIN [Concomitant]
     Indication: ANAEMIA
     Dosage: 1 CAPSULE
     Route: 048
     Dates: start: 20070102
  15. IMODIUM [Concomitant]
     Indication: DIARRHOEA
     Dosage: 2-4 MG
     Route: 048

REACTIONS (8)
  - ATRIAL FIBRILLATION [None]
  - DEEP VEIN THROMBOSIS [None]
  - DYSPNOEA [None]
  - ENCEPHALOPATHY [None]
  - HYPERKALAEMIA [None]
  - PULMONARY OEDEMA [None]
  - RENAL FAILURE ACUTE [None]
  - SOMNOLENCE [None]
